FAERS Safety Report 9227022 (Version 4)
Quarter: 2013Q3

REPORT INFORMATION
  Report Type: Spontaneous
  Country: US (occurrence: US)
  Receive Date: 20130412
  Receipt Date: 20130726
  Transmission Date: 20140515
  Serious: Yes (Hospitalization, Other)
  Sender: FDA-Public Use
  Company Number: US-009507513-1304USA005096

PATIENT
  Age: 56 Year
  Sex: Female

DRUGS (2)
  1. JANUVIA [Suspect]
     Indication: DIABETES MELLITUS
     Dosage: 1 DF, QD; 1 STANDARD PACKAGE BOTTLE OF 30
     Route: 048
     Dates: start: 201209, end: 201303
  2. TRAMADOL HYDROCHLORIDE [Concomitant]

REACTIONS (4)
  - Lung neoplasm malignant [Not Recovered/Not Resolved]
  - Haemoptysis [Not Recovered/Not Resolved]
  - Local swelling [Not Recovered/Not Resolved]
  - Abdominal pain upper [Not Recovered/Not Resolved]
